FAERS Safety Report 10181845 (Version 1)
Quarter: 2014Q2

REPORT INFORMATION
  Report Type: Spontaneous
  Country: US (occurrence: US)
  Receive Date: 20140519
  Receipt Date: 20140519
  Transmission Date: 20141212
  Serious: No
  Sender: FDA-Public Use
  Company Number: US-TEVA-482796USA

PATIENT
  Age: 15 Year
  Sex: Female
  Weight: 61.29 kg

DRUGS (3)
  1. PLAN B ONE-STEP [Suspect]
     Indication: POST COITAL CONTRACEPTION
     Dosage: 1.5 MILLIGRAM DAILY;
     Route: 048
     Dates: start: 20140504, end: 20140504
  2. METFORMIN [Concomitant]
     Indication: HYPOGLYCAEMIA
  3. SPIRONOLACTONE [Concomitant]
     Indication: HYPOGLYCAEMIA

REACTIONS (5)
  - Back pain [Unknown]
  - Muscle strain [Unknown]
  - Headache [Not Recovered/Not Resolved]
  - Dizziness [Not Recovered/Not Resolved]
  - Menstruation irregular [Recovered/Resolved]
